FAERS Safety Report 9059310 (Version 1)
Quarter: 2013Q1

REPORT INFORMATION
  Report Type: Spontaneous
  Country: AU (occurrence: AU)
  Receive Date: 20130211
  Receipt Date: 20130211
  Transmission Date: 20140127
  Serious: Yes (Other)
  Sender: FDA-Public Use
  Company Number: AU-ROCHE-1189885

PATIENT
  Age: 60 Year
  Sex: Male

DRUGS (5)
  1. AVASTIN [Suspect]
     Indication: RECTAL NEOPLASM
     Route: 065
  2. XELODA [Suspect]
     Indication: RECTAL NEOPLASM
     Route: 065
  3. FLUOROURACIL [Concomitant]
     Indication: RECTAL NEOPLASM
     Route: 065
  4. FOLINIC ACID [Concomitant]
     Indication: RECTAL NEOPLASM
     Route: 065
  5. OXALIPLATIN [Concomitant]
     Indication: RECTAL NEOPLASM
     Route: 065

REACTIONS (1)
  - Disease progression [Unknown]
